FAERS Safety Report 7187116-4 (Version None)
Quarter: 2010Q4

REPORT INFORMATION
  Report Type: 
  Country: None (occurrence: None)
  Receive Date: 20101222
  Receipt Date: 20101209
  Transmission Date: 20110411
  Serious: Yes (Hospitalization)
  Sender: FDA-Public Use
  Company Number: US-WATSON-2010-16042

PATIENT
  Age: 20 Month
  Sex: Male

DRUGS (1)
  1. LAMOTRIGINE [Suspect]
     Indication: PRODUCT USED FOR UNKNOWN INDICATION
     Dosage: 1500 MG, SINGLE
     Route: 048

REACTIONS (6)
  - ATAXIA [None]
  - CONVULSION [None]
  - CRYING [None]
  - MENTAL STATUS CHANGES [None]
  - OVERDOSE [None]
  - VOMITING [None]
